FAERS Safety Report 6169905-8 (Version None)
Quarter: 2009Q2

REPORT INFORMATION
  Report Type: 
  Country: None (occurrence: None)
  Receive Date: 20090428
  Receipt Date: 20090416
  Transmission Date: 20091009
  Serious: Yes (Other)
  Sender: FDA-Public Use
  Company Number: GB-ELI_LILLY_AND_COMPANY-GB200904003753

PATIENT
  Sex: Male
  Weight: 112 kg

DRUGS (10)
  1. BYETTA [Suspect]
     Indication: DIABETES MELLITUS
     Dosage: 1 D/F, 2/D
     Route: 050
     Dates: start: 20081025, end: 20081118
  2. ADALAT [Concomitant]
     Dosage: UNK, UNKNOWN
     Route: 065
  3. ALLOPURINOL [Concomitant]
     Dosage: UNK, UNKNOWN
     Route: 065
  4. ASPIRIN [Concomitant]
     Dosage: UNK, UNKNOWN
     Route: 065
  5. ATORVASTATIN [Concomitant]
     Dosage: UNK, UNKNOWN
     Route: 065
  6. BENDROFLUMETHIAZIDE [Concomitant]
     Dosage: UNK, UNKNOWN
     Route: 065
  7. FOSINOPRIL SODIUM [Concomitant]
     Dosage: UNK, UNKNOWN
     Route: 065
  8. GLIMEPIRIDE [Concomitant]
     Dosage: UNK, UNKNOWN
     Route: 065
  9. LOSARTAN POSTASSIUM [Concomitant]
     Dosage: UNK, UNKNOWN
     Route: 065
  10. METFORMIN W/ROSIGLITAZONE [Concomitant]
     Dosage: UNK, UNKNOWN
     Route: 065

REACTIONS (3)
  - FACE OEDEMA [None]
  - LIP SWELLING [None]
  - PRURITUS [None]
